FAERS Safety Report 6737378-X (Version None)
Quarter: 2010Q2

REPORT INFORMATION
  Report Type: 
  Country: None (occurrence: None)
  Receive Date: 20100524
  Receipt Date: 20100520
  Transmission Date: 20101027
  Serious: Yes (Other)
  Sender: FDA-Public Use
  Company Number: US-JNJFOC-20100504728

PATIENT
  Sex: Male

DRUGS (6)
  1. CONCENTRATED MOTRIN INFANTS DROPS [Suspect]
  2. CONCENTRATED MOTRIN INFANTS DROPS [Suspect]
     Indication: PYREXIA
  3. CONCENTRATED TYLENOL INFANT DROPS [Suspect]
  4. CONCENTRATED TYLENOL INFANT DROPS [Suspect]
     Indication: PYREXIA
  5. CHILDREN'S TYLENOL SUSPENSION [Suspect]
  6. CHILDREN'S TYLENOL SUSPENSION [Suspect]
     Indication: PYREXIA

REACTIONS (2)
  - PRODUCT QUALITY ISSUE [None]
  - PYREXIA [None]
